FAERS Safety Report 11148883 (Version 1)
Quarter: 2015Q2

REPORT INFORMATION
  Report Type: Spontaneous
  Country: US (occurrence: US)
  Receive Date: 20150529
  Receipt Date: 20150529
  Transmission Date: 20150821
  Serious: No
  Sender: FDA-Public Use
  Company Number: US-TEVA-565923ACC

PATIENT
  Sex: Female

DRUGS (1)
  1. PLAN B ONE-STEP [Suspect]
     Active Substance: LEVONORGESTREL
     Indication: POST COITAL CONTRACEPTION
     Dosage: 1.5 MILLIGRAM DAILY;
     Route: 048
     Dates: start: 20150521, end: 20150521

REACTIONS (2)
  - Menstruation irregular [Not Recovered/Not Resolved]
  - Menstruation irregular [Not Recovered/Not Resolved]

NARRATIVE: CASE EVENT DATE: 20150521
